FAERS Safety Report 12334826 (Version 3)
Quarter: 2016Q2

REPORT INFORMATION
  Report Type: Spontaneous
  Country: US (occurrence: US)
  Receive Date: 20160504
  Receipt Date: 20160602
  Transmission Date: 20160815
  Serious: Yes (Other)
  Sender: FDA-Public Use
  Company Number: US-BAYER-2016-086197

PATIENT
  Age: 24 Year
  Sex: Female
  Weight: 74.83 kg

DRUGS (3)
  1. MIRENA [Suspect]
     Active Substance: LEVONORGESTREL
     Indication: CONTRACEPTION
     Dosage: 20 MCG/24HR, CONT
     Route: 015
     Dates: start: 20160429, end: 20160429
  2. LIDOCAINE. [Concomitant]
     Active Substance: LIDOCAINE
     Indication: ANALGESIC THERAPY
  3. MIRENA [Suspect]
     Active Substance: LEVONORGESTREL
     Indication: CONTRACEPTION
     Dosage: 20 MCG/24HR, CONT
     Route: 015
     Dates: start: 20160421, end: 20160429

REACTIONS (4)
  - Procedural pain [Recovered/Resolved]
  - Embedded device [Recovered/Resolved]
  - Device difficult to use [None]
  - Uterine perforation [Recovered/Resolved]

NARRATIVE: CASE EVENT DATE: 20160429
